FAERS Safety Report 9511182 (Version 2)
Quarter: 2014Q1

REPORT INFORMATION
  Report Type: Spontaneous
  Country: US (occurrence: None)
  Receive Date: 20130305
  Receipt Date: 20140306
  Transmission Date: 20141002
  Serious: Yes (Other)
  Sender: FDA-Public Use
  Company Number: 163-21880-12122508

PATIENT
  Age: 75 Year
  Sex: Male

DRUGS (1)
  1. REVLIMID [Suspect]
     Indication: PLASMA CELL MYELOMA
     Dosage: 10 MG, 21 IN 28 D, PO
     Route: 048
     Dates: start: 20121128, end: 20121208

REACTIONS (6)
  - Rash [None]
  - Musculoskeletal pain [None]
  - Oropharyngeal pain [None]
  - Dysphonia [None]
  - Adverse drug reaction [None]
  - Drug intolerance [None]
